FAERS Safety Report 4436443-X (Version None)
Quarter: 2004Q3

REPORT INFORMATION
  Report Type: 
  Country: None (occurrence: None)
  Receive Date: 20040830
  Receipt Date: 20040514
  Transmission Date: 20050211
  Serious: No
  Sender: FDA-Public Use
  Company Number: US-BRISTOL-MYERS SQUIBB COMPANY-12587390

PATIENT
  Age: 4 Decade
  Sex: Male

DRUGS (3)
  1. ABILIFY [Suspect]
     Dosage: 30 MG DISCONTINUED BY PATIENT; RESTARTED AT 5 MG (NO DATES)
     Route: 048
  2. GEODON [Concomitant]
  3. PAXIL [Concomitant]

REACTIONS (1)
  - TARDIVE DYSKINESIA [None]
